FAERS Safety Report 14166197 (Version 1)
Quarter: 2017Q4

REPORT INFORMATION
  Report Type: Spontaneous
  Country: US (occurrence: US)
  Receive Date: 20171106
  Receipt Date: 20171106
  Transmission Date: 20180321
  Serious: Yes (Hospitalization)
  Sender: FDA-Public Use
  Company Number: None

PATIENT
  Age: 70 Year
  Sex: Male
  Weight: 112.5 kg

DRUGS (3)
  1. ZETIA [Suspect]
     Active Substance: EZETIMIBE
     Indication: BLOOD CHOLESTEROL
     Route: 048
     Dates: start: 20160615, end: 20171025
  2. VITAMIN D [Concomitant]
     Active Substance: CHOLECALCIFEROL
  3. AREDS2 [Concomitant]

REACTIONS (7)
  - Hyperhidrosis [None]
  - Sleep disorder [None]
  - Pancreatitis [None]
  - Movement disorder [None]
  - Muscular weakness [None]
  - Hypoaesthesia [None]
  - Arthralgia [None]

NARRATIVE: CASE EVENT DATE: 20171010
